FAERS Safety Report 13615645 (Version 1)
Quarter: 2017Q2

REPORT INFORMATION
  Report Type: Spontaneous
  Country: US (occurrence: US)
  Receive Date: 20170606
  Receipt Date: 20170606
  Transmission Date: 20170830
  Serious: No
  Sender: FDA-Public Use
  Company Number: US-JNJFOC-20170529131

PATIENT
  Sex: Female

DRUGS (1)
  1. NIZORAL A-D [Suspect]
     Active Substance: KETOCONAZOLE
     Indication: PROPHYLAXIS
     Dosage: STRENGTH 1%
     Route: 061

REACTIONS (2)
  - Product use in unapproved indication [Unknown]
  - Hair texture abnormal [Unknown]
